FAERS Safety Report 9112906 (Version 1)
Quarter: 2013Q1

REPORT INFORMATION
  Report Type: Spontaneous
  Country: US (occurrence: US)
  Receive Date: 20130211
  Receipt Date: 20130211
  Transmission Date: 20140127
  Serious: Yes (Other)
  Sender: FDA-Public Use
  Company Number: US-TEVA-385401USA

PATIENT
  Age: 31 Year
  Sex: Female
  Weight: 90.8 kg

DRUGS (1)
  1. PLAN B ONE-STEP [Suspect]
     Indication: POST COITAL CONTRACEPTION
     Dosage: 1.5 MILLIGRAM DAILY;
     Route: 048
     Dates: start: 20130121, end: 20130121

REACTIONS (4)
  - Pregnancy after post coital contraception [Unknown]
  - Drug ineffective [Unknown]
  - Pelvic pain [Recovered/Resolved]
  - Menstruation irregular [Not Recovered/Not Resolved]
